FAERS Safety Report 19455599 (Version 1)
Quarter: 2021Q2

REPORT INFORMATION
  Report Type: Spontaneous
  Country: US (occurrence: US)
  Receive Date: 20210623
  Receipt Date: 20210623
  Transmission Date: 20210717
  Serious: Yes (Hospitalization)
  Sender: FDA-Public Use
  Company Number: None

PATIENT
  Age: 66 Year
  Sex: Female

DRUGS (9)
  1. GABAPENTIN. [Concomitant]
     Active Substance: GABAPENTIN
  2. FIBER [Concomitant]
     Active Substance: PSYLLIUM HUSK
  3. ATORVASTATIN [Concomitant]
     Active Substance: ATORVASTATIN
  4. COPAXONE [Suspect]
     Active Substance: GLATIRAMER ACETATE
     Indication: MULTIPLE SCLEROSIS
     Dosage: ?          OTHER FREQUENCY:TIW;?
     Route: 058
     Dates: start: 20140730
  5. LOSARTAN. [Concomitant]
     Active Substance: LOSARTAN
  6. CEPHALEXIN. [Concomitant]
     Active Substance: CEPHALEXIN
  7. TIZANIDINE. [Concomitant]
     Active Substance: TIZANIDINE
  8. NITROFURANTOIN. [Concomitant]
     Active Substance: NITROFURANTOIN
  9. TAMLOSIN [Concomitant]

REACTIONS (3)
  - Nephrolithiasis [None]
  - Disease complication [None]
  - Surgery [None]

NARRATIVE: CASE EVENT DATE: 20210522
